FAERS Safety Report 4761844-X (Version None)
Quarter: 2005Q3

REPORT INFORMATION
  Report Type: 
  Country: None (occurrence: None)
  Receive Date: 20050906
  Receipt Date: 20050826
  Transmission Date: 20060218
  Serious: Yes (Death, Hospitalization)
  Sender: FDA-Public Use
  Company Number: BR-ROCHE-415591

PATIENT
  Age: 79 Year
  Sex: Female

DRUGS (2)
  1. NAPROSYN [Suspect]
     Indication: SPINAL DISORDER
     Route: 048
     Dates: start: 20050615, end: 20050615
  2. CAPTOPRIL [Concomitant]
     Dates: end: 20050812

REACTIONS (3)
  - DEATH [None]
  - HEPATITIS TOXIC [None]
  - INTERVERTEBRAL DISCITIS [None]
